FAERS Safety Report 7524416-X (Version None)
Quarter: 2011Q2

REPORT INFORMATION
  Report Type: 
  Country: None (occurrence: None)
  Receive Date: 20110606
  Receipt Date: 20110523
  Transmission Date: 20111010
  Serious: Yes (Death, Hospitalization, Other)
  Sender: FDA-Public Use
  Company Number: PHHY2011JP04548

PATIENT
  Age: 80 Year
  Sex: Male

DRUGS (24)
  1. MAGNESIUM SULFATE [Concomitant]
     Dosage: UNK
  2. FRANDOL [Concomitant]
     Dosage: UNK
  3. JANUVIA [Concomitant]
     Dosage: UNK
  4. RASILEZ [Suspect]
     Indication: HYPERTENSION
     Dosage: UNK
     Route: 048
     Dates: start: 20101001
  5. LAC B [Concomitant]
     Dosage: UNK
  6. DOXAZOSIN MESYLATE [Concomitant]
     Dosage: UNK
  7. URINORM [Concomitant]
     Dosage: UNK
  8. CARVEDILOL [Concomitant]
     Dosage: UNK
  9. MEIACT [Concomitant]
     Dosage: UNK
  10. SIGMART [Concomitant]
     Dosage: UNK
  11. SHAKUYAKUKANZOUTOU [Suspect]
     Dosage: UNK
  12. PRAVASTATIN SODIUM [Concomitant]
     Dosage: UNK
  13. CANDESARTAN CILEXETIL [Concomitant]
     Dosage: UNK
  14. DISOPYRAMIDE PHOSPHATE [Concomitant]
     Dosage: UNK
  15. ANTIBACTERIALS [Concomitant]
     Dosage: UNK
  16. TICLOPIDINE HCL [Concomitant]
     Dosage: UNK
  17. CONIEL [Concomitant]
     Dosage: UNK
  18. PURSENNID [Concomitant]
     Dosage: UNK
  19. LANSOPRAZOLE [Concomitant]
     Dosage: UNK
  20. FERROUS CITRATE [Concomitant]
     Dosage: UNK
  21. ASPIRIN [Concomitant]
     Dosage: UNK
  22. ARICEPT [Concomitant]
     Dosage: UNK
  23. ZETIA [Concomitant]
     Dosage: UNK
  24. PROCYLIN [Concomitant]
     Dosage: UNK

REACTIONS (4)
  - DEATH [None]
  - RESPIRATORY FAILURE [None]
  - INTERSTITIAL LUNG DISEASE [None]
  - BLOOD LACTATE DEHYDROGENASE INCREASED [None]
